FAERS Safety Report 5514232-2 (Version None)
Quarter: 2007Q4

REPORT INFORMATION
  Report Type: 
  Country: None (occurrence: None)
  Receive Date: 20071031
  Receipt Date: 20070702
  Transmission Date: 20080405
  Serious: Yes (Other)
  Sender: FDA-Public Use
  Company Number: US020505

PATIENT
  Sex: Female
  Weight: 63.05 kg

DRUGS (6)
  1. PROVIGIL [Suspect]
     Indication: DEPRESSION
     Dosage: 200 MG QD ORAL
     Route: 048
     Dates: start: 20070318, end: 20070501
  2. CYMBALTA [Concomitant]
  3. ADDERALL XR 10 [Concomitant]
  4. ESTRADIOL [Concomitant]
  5. FOLIC ACID [Concomitant]
  6. ABILIFY [Concomitant]

REACTIONS (4)
  - ALANINE AMINOTRANSFERASE INCREASED [None]
  - ASPARTATE AMINOTRANSFERASE INCREASED [None]
  - BLOOD ALKALINE PHOSPHATASE INCREASED [None]
  - GAMMA-GLUTAMYLTRANSFERASE INCREASED [None]
